FAERS Safety Report 4791461-7 (Version None)
Quarter: 2005Q4

REPORT INFORMATION
  Report Type: 
  Country: None (occurrence: None)
  Receive Date: 20051007
  Receipt Date: 20040513
  Transmission Date: 20060501
  Serious: No
  Sender: FDA-Public Use
  Company Number: US-BRISTOL-MYERS SQUIBB COMPANY-12587101

PATIENT
  Age: 55 Year
  Sex: Female
  Weight: 73 kg

DRUGS (4)
  1. AVAPRO [Suspect]
     Indication: HYPERTENSION
     Route: 048
     Dates: start: 20031001, end: 20040501
  2. PNEUMOVAX 23 [Concomitant]
  3. FOSAMAX [Concomitant]
  4. ACTONEL [Concomitant]

REACTIONS (2)
  - DIPLOPIA [None]
  - HEADACHE [None]
